FAERS Safety Report 6259846-X (Version None)
Quarter: 2009Q3

REPORT INFORMATION
  Report Type: 
  Country: None (occurrence: None)
  Receive Date: 20090708
  Receipt Date: 20090629
  Transmission Date: 20100115
  Serious: Yes (Disabling, Other)
  Sender: FDA-Public Use
  Company Number: US-ROCHE-443471

PATIENT
  Age: 75 Year
  Sex: Male
  Weight: 90.7 kg

DRUGS (13)
  1. CELLCEPT [Suspect]
     Indication: MYASTHENIA GRAVIS
     Dosage: DURATION: 2.5 YEARS
     Route: 048
     Dates: start: 20020601, end: 20041130
  2. PREDNISONE [Concomitant]
     Indication: MYASTHENIA GRAVIS
     Route: 048
     Dates: start: 19960701
  3. TYLENOL (CAPLET) [Concomitant]
     Dosage: TAKEN AS NEEDED (PRN).
  4. ASCORBIC ACID [Concomitant]
  5. GLUCOSAMINE [Concomitant]
  6. ASPIRIN [Concomitant]
  7. DIPYRIDAMOLE [Concomitant]
     Dosage: DRUG REPORTED AS: DIPYRIMIDOLE
  8. AVODART [Concomitant]
     Dosage: DRUG REPORTED AS: AVADAR 0.5 MG
  9. HYDROCHLOROTHIAZIDE [Concomitant]
  10. ANAPRIL [Concomitant]
  11. BENICAR [Concomitant]
  12. NORVASC [Concomitant]
  13. GLIMEPIRIDE [Concomitant]

REACTIONS (7)
  - BLINDNESS [None]
  - BLOOD GLUCOSE INCREASED [None]
  - COUGH [None]
  - DYSPNOEA [None]
  - EYE HAEMORRHAGE [None]
  - MACULAR DEGENERATION [None]
  - PROSTATIC SPECIFIC ANTIGEN INCREASED [None]
